FAERS Safety Report 7007428-4 (Version None)
Quarter: 2010Q3

REPORT INFORMATION
  Report Type: 
  Country: None (occurrence: None)
  Receive Date: 20100922
  Receipt Date: 20100913
  Transmission Date: 20110219
  Serious: Yes (Hospitalization)
  Sender: FDA-Public Use
  Company Number: FR-ASTRAZENECA-2010SE43150

PATIENT
  Age: 26942 Day
  Sex: Female

DRUGS (10)
  1. CRESTOR [Suspect]
     Indication: HYPERCHOLESTEROLAEMIA
     Route: 048
     Dates: start: 20090501, end: 20100525
  2. COLCHICINE [Interacting]
     Route: 048
     Dates: start: 20100507
  3. SELOKEN E.R [Concomitant]
     Route: 048
  4. HYPERIUM [Concomitant]
     Route: 048
  5. FUROSEMIDE [Concomitant]
     Route: 048
  6. ARANESP [Concomitant]
     Route: 058
  7. LANTUS [Concomitant]
     Route: 058
  8. ALLOPURINOL [Concomitant]
     Route: 065
     Dates: start: 20100507
  9. ZANIDIP [Concomitant]
     Route: 065
  10. APIDRA [Concomitant]
     Route: 065

REACTIONS (3)
  - DRUG INTERACTION [None]
  - GAIT DISTURBANCE [None]
  - RHABDOMYOLYSIS [None]
